FAERS Safety Report 9100789 (Version 1)
Quarter: 2013Q1

REPORT INFORMATION
  Report Type: Spontaneous
  Country: IT (occurrence: IT)
  Receive Date: 20130215
  Receipt Date: 20130215
  Transmission Date: 20140127
  Serious: Yes (Hospitalization)
  Sender: FDA-Public Use
  Company Number: IT-ROCHE-1190904

PATIENT
  Age: 64 Year
  Sex: Male

DRUGS (3)
  1. AVASTIN [Suspect]
     Indication: COLON CANCER
     Route: 065
     Dates: start: 20120103, end: 20120418
  2. IRINOTECAN [Concomitant]
     Indication: COLON CANCER
     Route: 042
  3. FLUOROURACILE [Concomitant]
     Indication: COLON CANCER
     Route: 042

REACTIONS (1)
  - Leukoencephalopathy [Recovered/Resolved]
